FAERS Safety Report 4611714-2 (Version None)
Quarter: 2005Q2

REPORT INFORMATION
  Report Type: 
  Country: None (occurrence: None)
  Receive Date: 20050311
  Receipt Date: 20041110
  Transmission Date: 20051028
  Serious: No
  Sender: FDA-Public Use
  Company Number: 2004-BP-10855BP

PATIENT
  Age: 69 Year
  Sex: Male

DRUGS (10)
  1. SPIRIVA [Suspect]
     Indication: CHRONIC OBSTRUCTIVE PULMONARY DISEASE
     Dosage: 18 MCG (18 MCG, 1 IN 1 D), IH
     Route: 055
     Dates: start: 20040601
  2. SPIRIVA [Suspect]
     Indication: EMPHYSEMA
  3. PREVACID [Concomitant]
  4. ZANTAC [Concomitant]
  5. BENICAR HYDROCHLORIDE [Concomitant]
  6. HYTRIN [Concomitant]
  7. AVODARET [Concomitant]
  8. ADVAIR DISKUS 100/50 [Concomitant]
  9. MULTIVITAMIN [Concomitant]
  10. SAW PALMETTO (SERENOA REPENS) [Concomitant]

REACTIONS (1)
  - DYSGEUSIA [None]
